FAERS Safety Report 7752722-2 (Version None)
Quarter: 2011Q3

REPORT INFORMATION
  Report Type: 
  Country: None (occurrence: None)
  Receive Date: 20110915
  Receipt Date: 20110905
  Transmission Date: 20111222
  Serious: Yes (Other)
  Sender: FDA-Public Use
  Company Number: JP-TEVA-299945ISR

PATIENT
  Age: 64 Year
  Sex: Male

DRUGS (2)
  1. CISPLATIN [Suspect]
  2. SODIUM THIOSULFATE [Concomitant]
     Route: 042

REACTIONS (1)
  - VASCULAR PSEUDOANEURYSM [None]
